FAERS Safety Report 17054923 (Version 2)
Quarter: 2020Q1

REPORT INFORMATION
  Report Type: Spontaneous
  Country: US (occurrence: US)
  Receive Date: 20191120
  Receipt Date: 20200103
  Transmission Date: 20200409
  Serious: No
  Sender: FDA-Public Use
  Company Number: US-SA-2019SA316037

PATIENT
  Sex: Female

DRUGS (1)
  1. DUPIXENT [Suspect]
     Active Substance: DUPILUMAB
     Indication: ECZEMA
     Dosage: 300 MG, QOW
     Route: 058
     Dates: start: 201905

REACTIONS (5)
  - Product use in unapproved indication [Unknown]
  - Eye pruritus [Unknown]
  - Exposure during pregnancy [Unknown]
  - Skin irritation [Unknown]
  - Erythema [Unknown]
